FAERS Safety Report 9412152 (Version 1)
Quarter: 2013Q3

REPORT INFORMATION
  Report Type: Spontaneous
  Country: NL (occurrence: NL)
  Receive Date: 20130722
  Receipt Date: 20130722
  Transmission Date: 20140515
  Serious: Yes (Life-Threatening, Hospitalization, Other)
  Sender: FDA-Public Use
  Company Number: NL-NOVOPROD-382822

PATIENT
  Age: 69 Year
  Sex: Female

DRUGS (7)
  1. VICTOZA [Suspect]
     Indication: TYPE 2 DIABETES MELLITUS
     Dosage: 0.6 MG, QD
     Route: 058
     Dates: start: 20110609, end: 20130521
  2. NOVORAPID FLEXPEN [Concomitant]
     Indication: TYPE 2 DIABETES MELLITUS
     Dosage: 6 IU, TID
     Route: 058
  3. METFORMIN [Concomitant]
     Indication: TYPE 2 DIABETES MELLITUS
     Dosage: 500 MG, TID
     Route: 048
  4. SIMVASTATIN [Concomitant]
     Dosage: 40 MG, QD
     Route: 048
  5. TRIAMTERENE [Concomitant]
     Dosage: 50 MG, QD
     Route: 048
  6. LOSARTAN [Concomitant]
     Dosage: 50 MG, BID
     Route: 048
  7. AMLODIPINE BESYLATE [Concomitant]
     Dosage: 5 MG, QD (1 TIME DAILY HALF TABLET 10 MG, SO 5 MG)
     Route: 048

REACTIONS (2)
  - Pancreatic carcinoma [Not Recovered/Not Resolved]
  - Jaundice [Unknown]
